FAERS Safety Report 7630057-6 (Version None)
Quarter: 2011Q3

REPORT INFORMATION
  Report Type: 
  Country: None (occurrence: None)
  Receive Date: 20110722
  Receipt Date: 20110715
  Transmission Date: 20111222
  Serious: Yes (Death)
  Sender: FDA-Public Use
  Company Number: GB-ELI_LILLY_AND_COMPANY-GB200801002507

PATIENT
  Sex: Male

DRUGS (5)
  1. FLUTICASONE PROPIONATE [Concomitant]
     Route: 055
  2. SOMATROPIN RDNA [Suspect]
     Indication: GROWTH HORMONE DEFICIENCY
     Dosage: UNK
     Dates: start: 19991005
  3. SUSTANON                                /NET/ [Concomitant]
  4. LEVOTHYROXINE SODIUM [Concomitant]
     Dosage: 150 MG, QD
  5. SOMATROPIN RDNA [Suspect]
     Dosage: 0.6 MG, DAILY (1/D)
     Dates: start: 20061122

REACTIONS (1)
  - CEREBRAL HAEMORRHAGE [None]
